FAERS Safety Report 7303673-9 (Version None)
Quarter: 2011Q1

REPORT INFORMATION
  Report Type: 
  Country: None (occurrence: None)
  Receive Date: 20110221
  Receipt Date: 20110211
  Transmission Date: 20110831
  Serious: Yes (Hospitalization, Other)
  Sender: FDA-Public Use
  Company Number: US-ASTRAZENECA-2010SE61397

PATIENT
  Age: 58 Year
  Sex: Female

DRUGS (23)
  1. IMDUR [Concomitant]
     Route: 048
     Dates: start: 20110114
  2. ELAVIL [Concomitant]
     Route: 048
  3. ALLEGRA [Concomitant]
     Route: 048
     Dates: start: 20110114
  4. MORPHINE SULFATE [Concomitant]
     Route: 048
     Dates: start: 20101124
  5. CARDIZEM CD [Concomitant]
     Route: 048
     Dates: start: 20110114
  6. ICAPS [Concomitant]
     Dosage: 1 TABLET EVERY MORNING
     Route: 048
     Dates: start: 20110114
  7. NITROGLYCERIN [Concomitant]
     Dosage: 0.4 MG UNDER THE TONGUE EVERY 5 MINUTES X 3 DOSES AS NEEDED
     Route: 060
  8. LOPRESSOR [Concomitant]
     Route: 048
     Dates: start: 20101112
  9. ARIMIDEX [Suspect]
     Route: 048
     Dates: start: 20110114
  10. ZESTRIL [Concomitant]
     Route: 048
     Dates: start: 20110114
  11. SINGULAIR [Concomitant]
     Route: 048
  12. MAGNESIUM [Concomitant]
     Route: 048
     Dates: start: 20101112
  13. ASCORBIC ACID [Concomitant]
     Route: 048
     Dates: start: 20110114
  14. NEURONTIN [Concomitant]
     Route: 048
     Dates: start: 20100818
  15. PROVENTIL [Concomitant]
     Dosage: 90MCG/ACT TWO PUFFS  INTI THE LUNGS EVERY SIX HOURS AS NEEDED
     Route: 055
  16. SYNTHROID [Concomitant]
     Route: 048
  17. CYMBALTA [Concomitant]
     Route: 048
     Dates: start: 20100730
  18. PROTONIX [Concomitant]
     Route: 048
     Dates: start: 20110114
  19. OS-CAL AND D [Concomitant]
     Dosage: 500-200 MG-UNIT TWICE DAILY
     Route: 048
     Dates: start: 20110114
  20. ZOCOR [Concomitant]
     Route: 048
  21. DAYPRO [Concomitant]
     Route: 048
     Dates: start: 20110114
  22. NASONEX [Concomitant]
     Dosage: ONE SPRAY INTO BOTH NOSTRILS ONCE DAILY
     Route: 045
  23. ADVAIR DISKUS 100/50 [Concomitant]
     Dosage: ONE PUFF EVERY 12 HOURS
     Route: 055

REACTIONS (6)
  - INTERVERTEBRAL DISC DEGENERATION [None]
  - BACK PAIN [None]
  - FEMUR FRACTURE [None]
  - MUSCULOSKELETAL PAIN [None]
  - RADICULITIS LUMBOSACRAL [None]
  - UPPER LIMB FRACTURE [None]
